APPROVED DRUG PRODUCT: AMINOCAPROIC ACID
Active Ingredient: AMINOCAPROIC ACID
Strength: 0.25GM/ML
Dosage Form/Route: SOLUTION;ORAL
Application: A214458 | Product #001
Applicant: TARO PHARMACEUTICAL INDUSTRIES LTD
Approved: Mar 24, 2023 | RLD: No | RS: No | Type: DISCN